FAERS Safety Report 7610796-3 (Version None)
Quarter: 2011Q3

REPORT INFORMATION
  Report Type: 
  Country: None (occurrence: None)
  Receive Date: 20110715
  Receipt Date: 20110703
  Transmission Date: 20111222
  Serious: Yes (Other)
  Sender: FDA-Public Use
  Company Number: PHHY2011FR60046

PATIENT
  Sex: Female

DRUGS (2)
  1. IBANDRONATE SODIUM [Concomitant]
  2. ZOLEDRONIC ACID [Suspect]

REACTIONS (4)
  - HYPERCALCAEMIA [None]
  - OSTEONECROSIS OF JAW [None]
  - BONE PAIN [None]
  - BONE DISORDER [None]
